FAERS Safety Report 7674926-X (Version None)
Quarter: 2011Q3

REPORT INFORMATION
  Report Type: 
  Country: None (occurrence: None)
  Receive Date: 20110810
  Receipt Date: 20110727
  Transmission Date: 20111222
  Serious: Yes (Hospitalization)
  Sender: FDA-Public Use
  Company Number: US-ELI_LILLY_AND_COMPANY-US201108002305

PATIENT
  Sex: Female

DRUGS (1)
  1. ZYPREXA RELPREVV [Suspect]
     Dosage: 300MG
     Route: 030

REACTIONS (2)
  - HOSPITALISATION [None]
  - DRUG DOSE OMISSION [None]
